FAERS Safety Report 4874075-X (Version None)
Quarter: 2005Q4

REPORT INFORMATION
  Report Type: 
  Country: None (occurrence: None)
  Receive Date: 20051201
  Receipt Date: 20050808
  Transmission Date: 20060501
  Serious: No
  Sender: FDA-Public Use
  Company Number: 2005PV000934

PATIENT
  Age: 55 Year
  Sex: Female
  Weight: 95.709 kg

DRUGS (5)
  1. BYETTA [Suspect]
     Indication: DIABETES MELLITUS NON-INSULIN-DEPENDENT
     Dosage: 5 MCG;BID;SC
     Route: 058
     Dates: start: 20050728
  2. GLUCOPHAGE [Concomitant]
  3. AMARYL [Concomitant]
  4. PRINIVIL [Concomitant]
  5. LIPITOR [Concomitant]

REACTIONS (1)
  - INJECTION SITE BRUISING [None]
